FAERS Safety Report 12776402 (Version 2)
Quarter: 2016Q3

REPORT INFORMATION
  Report Type: Spontaneous
  Country: US (occurrence: US)
  Receive Date: 20160923
  Receipt Date: 20160923
  Transmission Date: 20161109
  Serious: Yes (Other)
  Sender: FDA-Public Use
  Company Number: US-GLAXOSMITHKLINE-US2016138185

PATIENT
  Age: 73 Year
  Sex: Female

DRUGS (4)
  1. GAS-X EXTRA STRENGTH [Suspect]
     Active Substance: DIMETHICONE
     Indication: FLATULENCE
     Dosage: 1 DF, TID (3 A DAY AFTER EACH MEAL)
     Route: 048
  2. GAVISCON [Suspect]
     Active Substance: ALUMINUM HYDROXIDE\MAGNESIUM CARBONATE
     Indication: PRODUCT USED FOR UNKNOWN INDICATION
     Dosage: UNK
  3. PREVACID [Suspect]
     Active Substance: LANSOPRAZOLE
     Indication: GASTROOESOPHAGEAL REFLUX DISEASE
     Dosage: 15 MG, BID  (2 BEFORE BREAKFAST 2 AFTER DINNER)
  4. GAS-X EXTRA STRENGTH [Suspect]
     Active Substance: DIMETHICONE
     Indication: GASTROOESOPHAGEAL REFLUX DISEASE

REACTIONS (10)
  - Dysphagia [Unknown]
  - Oesophageal stenosis [Unknown]
  - Incorrect drug administration duration [Unknown]
  - Feeling abnormal [Unknown]
  - Incorrect dose administered [Unknown]
  - Oropharyngeal pain [Unknown]
  - Drug effect incomplete [Unknown]
  - Glucose tolerance impaired [Not Recovered/Not Resolved]
  - Inappropriate schedule of drug administration [Unknown]
  - Off label use [Unknown]
